FAERS Safety Report 8037871-6 (Version None)
Quarter: 2012Q1

REPORT INFORMATION
  Report Type: 
  Country: None (occurrence: None)
  Receive Date: 20120111
  Receipt Date: 20120105
  Transmission Date: 20120608
  Serious: Yes (Other)
  Sender: FDA-Public Use
  Company Number: CA-ASTRAZENECA-2012SE01160

PATIENT
  Age: 16 Year
  Sex: Male

DRUGS (3)
  1. ABILIFY [Concomitant]
     Dosage: DAILY DOSAGE 4 MG, TWO TIMES A DAY
     Dates: start: 20111101
  2. SEROQUEL [Suspect]
     Indication: BIPOLAR DISORDER
     Dosage: 12.5 MG AM AND 12.5 PM
     Route: 048
     Dates: start: 20090101
  3. PROZAC [Concomitant]

REACTIONS (1)
  - BLINDNESS [None]
